FAERS Safety Report 9854781 (Version 2)
Quarter: 2014Q1

REPORT INFORMATION
  Report Type: Spontaneous
  Country: US (occurrence: US)
  Receive Date: 20140130
  Receipt Date: 20140210
  Transmission Date: 20141002
  Serious: No
  Sender: FDA-Public Use
  Company Number: US-PFIZER INC-2014026991

PATIENT
  Age: 52 Year
  Sex: Female

DRUGS (6)
  1. CELEBREX [Suspect]
     Dosage: UNK
  2. MELOXICAM [Suspect]
     Dosage: UNK
  3. TETRACYCLINE HCL [Suspect]
     Dosage: UNK
  4. CIPROFLOXACIN [Suspect]
     Dosage: UNK
  5. LEVAQUIN [Suspect]
     Dosage: UNK
  6. KEFLEX [Suspect]
     Dosage: UNK

REACTIONS (1)
  - Drug hypersensitivity [Unknown]
